FAERS Safety Report 7156384-7 (Version None)
Quarter: 2010Q4

REPORT INFORMATION
  Report Type: 
  Country: None (occurrence: None)
  Receive Date: 20101110
  Receipt Date: 20101104
  Transmission Date: 20110411
  Serious: Yes (Other)
  Sender: FDA-Public Use
  Company Number: ES-IGSA-IG728

PATIENT
  Sex: Male

DRUGS (1)
  1. FLEBOGAMMA 5% [Suspect]
     Indication: SELECTIVE IGG SUBCLASS DEFICIENCY
     Dosage: 40 G - ONLY DOSE IV
     Route: 042
     Dates: start: 20100630

REACTIONS (5)
  - BRADYPHRENIA [None]
  - DISORIENTATION [None]
  - HEADACHE [None]
  - MUSCULAR WEAKNESS [None]
  - MYALGIA [None]
